FAERS Safety Report 8273811-2 (Version None)
Quarter: 2012Q2

REPORT INFORMATION
  Report Type: 
  Country: None (occurrence: None)
  Receive Date: 20120411
  Receipt Date: 20120402
  Transmission Date: 20120825
  Serious: Yes (Other)
  Sender: FDA-Public Use
  Company Number: PHHY2012DE030132

PATIENT
  Age: 48 Year
  Sex: Female

DRUGS (4)
  1. CLOZAPINE [Suspect]
  2. OLANZAPINE [Suspect]
     Dosage: 10 MG, UNK
  3. LORAZEPAM [Suspect]
     Dosage: 4.5 MG, UNK
  4. HALOPERIDOL [Concomitant]
     Dosage: 5 MG, DAILY

REACTIONS (2)
  - OXYGEN SATURATION DECREASED [None]
  - HYPOTHERMIA [None]
